FAERS Safety Report 11521215 (Version 2)
Quarter: 2015Q4

REPORT INFORMATION
  Report Type: Spontaneous
  Country: JP (occurrence: JP)
  Receive Date: 20150918
  Receipt Date: 20151230
  Transmission Date: 20160304
  Serious: Yes (Hospitalization)
  Sender: FDA-Public Use
  Company Number: JP-AMGEN-JPNSP2015096505

PATIENT
  Age: 81 Year
  Sex: Male
  Weight: 58 kg

DRUGS (16)
  1. RANMARK [Suspect]
     Active Substance: DENOSUMAB
     Indication: METASTASES TO BONE
     Dosage: 120 MG, Q4WK
     Route: 058
     Dates: start: 20130527, end: 20130527
  2. AMLODIPINE                         /00972402/ [Concomitant]
     Active Substance: AMLODIPINE BESYLATE
     Dosage: 2.5 MG, QD
     Route: 048
  3. CELECOX [Concomitant]
     Active Substance: CELECOXIB
     Dosage: 200 MG, BID
     Route: 048
  4. LANSOPRAZOLE. [Concomitant]
     Active Substance: LANSOPRAZOLE
     Dosage: 15 MG, QD
     Route: 048
  5. RANMARK [Suspect]
     Active Substance: DENOSUMAB
     Indication: SMALL CELL LUNG CANCER
  6. ALLEGRA [Concomitant]
     Active Substance: FEXOFENADINE HYDROCHLORIDE
     Dosage: 60 MG, BID
     Route: 048
  7. RENIVEZE [Concomitant]
     Active Substance: ENALAPRIL MALEATE
     Dosage: 2.5 MG, QD
     Route: 048
  8. ADONA                              /00056903/ [Concomitant]
     Active Substance: CARBAZOCHROME SODIUM SULFONATE
     Dosage: 30 MG, QD
     Route: 048
     Dates: end: 20130607
  9. PREDNISOLONE. [Concomitant]
     Active Substance: PREDNISOLONE
     Dosage: 80 MG, UNK
  10. WASSER V [Concomitant]
     Dosage: UNK, QD
     Route: 048
  11. MAGMITT [Concomitant]
     Active Substance: MAGNESIUM OXIDE
     Dosage: 330 MG, TID
     Route: 048
  12. URINORM                            /00227201/ [Concomitant]
     Dosage: 25 MG, QD
     Route: 048
  13. TRANSAMIN [Concomitant]
     Active Substance: TRANEXAMIC ACID
     Dosage: 250 MG, QD
     Route: 048
     Dates: end: 20130607
  14. ZETIA [Concomitant]
     Active Substance: EZETIMIBE
     Dosage: 10 MG, QD
     Route: 048
  15. BIOFERMIN                          /01617201/ [Concomitant]
     Active Substance: BACILLUS SUBTILIS\LACTOBACILLUS ACIDOPHILUS\STREPTOCOCCUS FAECAIS
     Dosage: 1 G, TID
     Route: 048
  16. ALLOPURINOL. [Concomitant]
     Active Substance: ALLOPURINOL
     Dosage: 100 MG, BID
     Route: 048

REACTIONS (1)
  - Interstitial lung disease [Recovering/Resolving]

NARRATIVE: CASE EVENT DATE: 20130527
